FAERS Safety Report 24422817 (Version 1)
Quarter: 2024Q4

REPORT INFORMATION
  Report Type: Spontaneous
  Country: JP (occurrence: JP)
  Receive Date: 20241010
  Receipt Date: 20241010
  Transmission Date: 20250114
  Serious: Yes (Other)
  Sender: PFIZER
  Company Number: JP-PFIZER INC-202400273781

PATIENT

DRUGS (1)
  1. SUTENT [Suspect]
     Active Substance: SUNITINIB MALATE
     Indication: Gastrointestinal stromal tumour
     Dosage: 37.5 MG, CYCLIC (1X/DAY) FOR 4 WEEKS, THEN TOOK 2 WEEKS OFF

REACTIONS (3)
  - Cholangitis [Unknown]
  - Nausea [Unknown]
  - Decreased appetite [Unknown]
